FAERS Safety Report 8819764 (Version 2)
Quarter: 2014Q3

REPORT INFORMATION
  Report Type: Report from Study
  Country: US (occurrence: US)
  Receive Date: 20121001
  Receipt Date: 20140829
  Transmission Date: 20150326
  Serious: Yes (Other)
  Sender: FDA-Public Use
  Company Number: US-ROCHE-1124275

PATIENT
  Sex: Female

DRUGS (10)
  1. VERAPAMIL [Concomitant]
     Active Substance: VERAPAMIL HYDROCHLORIDE
  2. GLIBENCLAMIDE [Concomitant]
     Active Substance: GLYBURIDE
     Route: 065
  3. HERCEPTIN [Suspect]
     Active Substance: TRASTUZUMAB
     Indication: BREAST CANCER
     Route: 042
  4. TAXOL [Concomitant]
     Active Substance: PACLITAXEL
     Route: 065
  5. ALDACTONE (UNITED STATES) [Concomitant]
  6. HERCEPTIN [Suspect]
     Active Substance: TRASTUZUMAB
     Dosage: LOADING DOSE
     Route: 042
  7. FEMARA [Concomitant]
     Active Substance: LETROZOLE
     Route: 065
  8. GLUCOPHAGE [Concomitant]
     Active Substance: METFORMIN HYDROCHLORIDE
     Route: 065
  9. AMARYL [Concomitant]
     Active Substance: GLIMEPIRIDE
  10. HERCEPTIN [Suspect]
     Active Substance: TRASTUZUMAB
     Indication: BREAST CANCER FEMALE
     Dosage: MAINTENANCE DOSE
     Route: 042

REACTIONS (9)
  - Tenderness [Recovered/Resolved]
  - Muscular weakness [Unknown]
  - Neuropathy peripheral [Unknown]
  - Diabetic neuropathy [Unknown]
  - Abdominal pain upper [Recovered/Resolved]
  - Localised infection [Unknown]
  - Diarrhoea [Unknown]
  - Periarthritis [Unknown]
  - Cellulitis [Unknown]
